FAERS Safety Report 9365658 (Version 1)
Quarter: 2013Q2

REPORT INFORMATION
  Report Type: Spontaneous
  Country: US (occurrence: None)
  Receive Date: 20130624
  Receipt Date: 20130624
  Transmission Date: 20140414
  Serious: No
  Sender: FDA-Public Use
  Company Number: None

PATIENT
  Age: 56 Year
  Sex: Female
  Weight: 68.95 kg

DRUGS (1)
  1. BACLOFEN [Suspect]
     Indication: NECK PAIN
     Route: 048
     Dates: start: 20130619, end: 20130621

REACTIONS (1)
  - Dyspnoea [None]
